FAERS Safety Report 6421345-X (Version None)
Quarter: 2009Q4

REPORT INFORMATION
  Report Type: 
  Country: None (occurrence: None)
  Receive Date: 20091030
  Receipt Date: 20091018
  Transmission Date: 20100525
  Serious: Yes (Hospitalization, Other)
  Sender: FDA-Public Use
  Company Number: PHEH2009US14136

PATIENT
  Sex: Female

DRUGS (5)
  1. EXJADE [Suspect]
     Indication: SICKLE CELL ANAEMIA
     Dosage: 1250 MG, DAILY
     Route: 048
     Dates: start: 20090601
  2. EXJADE [Suspect]
     Indication: IRON OVERLOAD
  3. FOLIC ACID [Concomitant]
     Dosage: 1 MG, DAILY
  4. LORTAB [Concomitant]
     Dosage: 10/500 Q4H PRN
  5. HYDREA [Concomitant]
     Dosage: 500 MG, TID

REACTIONS (3)
  - SERUM FERRITIN INCREASED [None]
  - SICKLE CELL ANAEMIA WITH CRISIS [None]
  - WHITE BLOOD CELL COUNT INCREASED [None]
